FAERS Safety Report 7107044 (Version 2)
Quarter: 2020Q3

REPORT INFORMATION
  Report Type: Report from Study
  Country: US (occurrence: US)
  Receive Date: 20090908
  Receipt Date: 20091022
  Transmission Date: 20201104
  Serious: Yes (Other)
  Sender: FDA-Public Use
  Company Number: US-ROCHE-652863

PATIENT
  Age: 73 Year
  Sex: Female

DRUGS (1)
  1. IBANDRONIC ACID. [Suspect]
     Active Substance: IBANDRONIC ACID
     Indication: OSTEOPOROSIS
     Route: 048
     Dates: start: 200905, end: 200908

REACTIONS (6)
  - Abdominal pain upper [Recovered/Resolved]
  - Fatigue [Unknown]
  - Somnolence [Unknown]
  - Liver disorder [Unknown]
  - Dizziness [Recovered/Resolved]
  - Decreased appetite [Unknown]
